FAERS Safety Report 8441599 (Version 2)
Quarter: 2013Q1

REPORT INFORMATION
  Report Type: Spontaneous
  Country: US (occurrence: US)
  Receive Date: 20120305
  Receipt Date: 20130327
  Transmission Date: 20140127
  Serious: Yes (Hospitalization)
  Sender: FDA-Public Use
  Company Number: US-ROCHE-1044429

PATIENT
  Sex: Female

DRUGS (4)
  1. BONIVA [Suspect]
     Indication: OSTEOPOROSIS
     Dosage: DOSES: 75 MG, 150 MG
     Route: 048
  2. FOSAMAX [Suspect]
     Indication: OSTEOPOROSIS
     Route: 048
  3. SIMVASTATIN [Concomitant]
  4. PLAVIX [Concomitant]

REACTIONS (1)
  - Femur fracture [Unknown]
